FAERS Safety Report 6868418-5 (Version None)
Quarter: 2010Q3

REPORT INFORMATION
  Report Type: 
  Country: None (occurrence: None)
  Receive Date: 20100722
  Receipt Date: 20080616
  Transmission Date: 20110219
  Serious: No
  Sender: FDA-Public Use
  Company Number: US-PFIZER INC-2008046907

PATIENT
  Sex: Female
  Weight: 66.363 kg

DRUGS (5)
  1. CHANTIX [Suspect]
     Indication: SMOKING CESSATION THERAPY
     Dates: start: 20080519
  2. SYNTHROID [Concomitant]
  3. TRICOR [Concomitant]
  4. CALCIUM [Concomitant]
  5. VITAMINS [Concomitant]

REACTIONS (4)
  - FEELING HOT [None]
  - FEELING JITTERY [None]
  - INSOMNIA [None]
  - NAUSEA [None]
